FAERS Safety Report 10217219 (Version 1)
Quarter: 2014Q2

REPORT INFORMATION
  Report Type: Spontaneous
  Country: AU (occurrence: AU)
  Receive Date: 20140604
  Receipt Date: 20140604
  Transmission Date: 20141212
  Serious: Yes (Hospitalization)
  Sender: FDA-Public Use
  Company Number: AU-ACTAVIS PTY LTD-2014-12032

PATIENT
  Sex: Male

DRUGS (1)
  1. IBUPROFEN (UNKNOWN) [Suspect]
     Indication: PATENT DUCTUS ARTERIOSUS
     Dosage: UNKNOWN, 2 COURSES, TOTAL 6 DOSE
     Route: 065

REACTIONS (1)
  - Pulmonary hypertension [Unknown]
